FAERS Safety Report 4623683-X (Version None)
Quarter: 2005Q2

REPORT INFORMATION
  Report Type: 
  Country: None (occurrence: None)
  Receive Date: 20050325
  Receipt Date: 20041123
  Transmission Date: 20051028
  Serious: No
  Sender: FDA-Public Use
  Company Number: USA041081589

PATIENT
  Age: 84 Year
  Sex: Female
  Weight: 35 kg

DRUGS (3)
  1. FORTEO [Suspect]
     Indication: OSTEOPOROSIS
     Dosage: 20 UG/ 1 DAY
     Dates: start: 20041014, end: 20041021
  2. THYROID TAB [Concomitant]
  3. ACETYLSALICYLIC ACID SRT [Concomitant]

REACTIONS (4)
  - DIFFICULTY IN WALKING [None]
  - MUSCLE SPASMS [None]
  - MYALGIA [None]
  - VISUAL ACUITY REDUCED [None]
